FAERS Safety Report 11574624 (Version 2)
Quarter: 2015Q4

REPORT INFORMATION
  Report Type: Spontaneous
  Country: US (occurrence: US)
  Receive Date: 20150916
  Receipt Date: 20151027
  Transmission Date: 20160304
  Serious: No
  Sender: FDA-Public Use
  Company Number: US-ELI_LILLY_AND_COMPANY-US200911002011

PATIENT
  Sex: Female

DRUGS (4)
  1. FORTEO [Suspect]
     Active Substance: TERIPARATIDE
     Indication: OSTEOPOROSIS
     Dosage: UNK, UNK
  2. VITAMINS [Concomitant]
     Active Substance: VITAMINS
  3. VITAMIN B12 [Concomitant]
     Active Substance: CYANOCOBALAMIN
  4. VIVAGLOBIN [Concomitant]
     Active Substance: HUMAN IMMUNOGLOBULIN G
     Indication: IMMUNE SYSTEM DISORDER
     Dosage: 40 MG, WEEKLY (1/W)
     Route: 058

REACTIONS (8)
  - Hepatic enzyme abnormal [Unknown]
  - Feeling abnormal [Unknown]
  - Lethargy [Unknown]
  - Swelling [Unknown]
  - Thinking abnormal [Unknown]
  - Blood calcium increased [Unknown]
  - Palpitations [Unknown]
  - Mobility decreased [Unknown]
